FAERS Safety Report 18576435 (Version 1)
Quarter: 2020Q4

REPORT INFORMATION
  Report Type: Spontaneous
  Country: US (occurrence: US)
  Receive Date: 20201203
  Receipt Date: 20201203
  Transmission Date: 20210114
  Serious: Yes (Hospitalization, Other)
  Sender: FDA-Public Use
  Company Number: US-PFIZER INC-2020466006

PATIENT
  Age: 41 Year
  Sex: Male

DRUGS (3)
  1. RITUXIMAB. [Suspect]
     Active Substance: RITUXIMAB
     Indication: PROTEINURIA
     Dosage: 1 G, 2X/WEEK (2 DOSES ON DAY 67 AND DAY 88)
  2. RITUXIMAB. [Suspect]
     Active Substance: RITUXIMAB
     Dosage: 750 MG
  3. PREDNISONE. [Concomitant]
     Active Substance: PREDNISONE
     Indication: RHEUMATOID ARTHRITIS
     Dosage: 40 MG, DAILY

REACTIONS (3)
  - Off label use [Unknown]
  - Pneumonia [Unknown]
  - Immunosuppression [Unknown]
